FAERS Safety Report 7969998-9 (Version None)
Quarter: 2011Q4

REPORT INFORMATION
  Report Type: 
  Country: None (occurrence: None)
  Receive Date: 20111212
  Receipt Date: 20111202
  Transmission Date: 20120403
  Serious: Yes (Other)
  Sender: FDA-Public Use
  Company Number: BR-US-EMD SERONO, INC.-7099984

PATIENT
  Sex: Female

DRUGS (9)
  1. FLUOXETINE [Concomitant]
  2. REBIF [Suspect]
     Indication: PRODUCT USED FOR UNKNOWN INDICATION
     Dates: start: 20110825
  3. LISADOR [Concomitant]
  4. METFORMIN HCL [Concomitant]
  5. SINVASTATINE [Concomitant]
  6. ASPIRIN [Concomitant]
  7. AMYTRIPTYLINE [Concomitant]
  8. ENALAPRIL MALEATE [Concomitant]
  9. NEOSALDINA [Concomitant]

REACTIONS (5)
  - MULTIPLE SCLEROSIS [None]
  - FIBROMYALGIA [None]
  - INAPPROPRIATE SCHEDULE OF DRUG ADMINISTRATION [None]
  - BLOOD PRESSURE INCREASED [None]
  - CHRONIC OBSTRUCTIVE PULMONARY DISEASE [None]
